FAERS Safety Report 10249463 (Version 6)
Quarter: 2015Q4

REPORT INFORMATION
  Report Type: Spontaneous
  Country: GB (occurrence: GB)
  Receive Date: 20140620
  Receipt Date: 20151204
  Transmission Date: 20160304
  Serious: Yes (Hospitalization, Other)
  Sender: FDA-Public Use
  Company Number: GB-PFIZER INC-2014163784

PATIENT
  Sex: Female

DRUGS (4)
  1. TAZOCIN [Suspect]
     Active Substance: PIPERACILLIN SODIUM\TAZOBACTAM SODIUM
     Indication: OSTEOMYELITIS
     Dosage: 4500 MG, UNK
     Route: 041
     Dates: start: 20140424, end: 20140510
  2. SODIUM CHLORIDE. [Suspect]
     Active Substance: SODIUM CHLORIDE
     Dosage: 1000 ML, UNK
     Route: 041
     Dates: start: 20140424, end: 20140510
  3. TAZOCIN [Suspect]
     Active Substance: PIPERACILLIN SODIUM\TAZOBACTAM SODIUM
     Indication: DEVICE RELATED INFECTION
     Dosage: 4500 MG, UNK
     Route: 041
     Dates: start: 20131117, end: 20131216
  4. SODIUM CHLORIDE. [Suspect]
     Active Substance: SODIUM CHLORIDE
     Indication: MEDICATION DILUTION
     Dosage: 1000 ML, UNK
     Route: 041
     Dates: start: 20131117, end: 20131216

REACTIONS (5)
  - C-reactive protein increased [Unknown]
  - Vomiting [Unknown]
  - Hypersensitivity [Unknown]
  - Drug-induced liver injury [Unknown]
  - Pyrexia [Unknown]
